FAERS Safety Report 16209404 (Version 12)
Quarter: 2020Q3

REPORT INFORMATION
  Report Type: Report from Study
  Country: US (occurrence: US)
  Receive Date: 20190417
  Receipt Date: 20200814
  Transmission Date: 20201102
  Serious: Yes (Hospitalization, Other)
  Sender: FDA-Public Use
  Company Number: US-ACTELION-A-NJ2019-189106

PATIENT
  Age: 47 Year
  Sex: Female
  Weight: 108.84 kg

DRUGS (28)
  1. OPSUMIT [Suspect]
     Active Substance: MACITENTAN
     Dosage: 10 MG, QD
     Route: 048
     Dates: start: 20190109
  2. AMLODIPINE [Concomitant]
     Active Substance: AMLODIPINE BESYLATE
  3. OXYCODONE WITH APAP [Concomitant]
     Active Substance: ACETAMINOPHEN\OXYCODONE HYDROCHLORIDE
  4. TRAMADOL. [Concomitant]
     Active Substance: TRAMADOL
  5. POTASSIUM CHLORIDE. [Concomitant]
     Active Substance: POTASSIUM CHLORIDE
  6. LYRICA [Concomitant]
     Active Substance: PREGABALIN
     Dosage: 100 MG
     Dates: start: 20190814
  7. MORPHINE [Concomitant]
     Active Substance: MORPHINE
     Dosage: 15 MG
     Dates: start: 20190824
  8. TORSEMIDE. [Concomitant]
     Active Substance: TORSEMIDE
     Dosage: 100 MG
     Dates: start: 20190906
  9. FERRO SULFAT [Concomitant]
  10. MIDODRINE [Concomitant]
     Active Substance: MIDODRINE
     Dosage: 5 MG
     Dates: start: 20190814
  11. SILDENAFIL. [Concomitant]
     Active Substance: SILDENAFIL
  12. OMEPRAZOLE. [Concomitant]
     Active Substance: OMEPRAZOLE
  13. ZOLPIDEM [Concomitant]
     Active Substance: ZOLPIDEM TARTRATE
     Dosage: 10 MG
     Dates: start: 20190819
  14. OPSUMIT [Suspect]
     Active Substance: MACITENTAN
     Indication: PULMONARY ARTERIAL HYPERTENSION
     Dosage: 10 MG, QD
     Route: 048
     Dates: start: 20190109
  15. HYDROCHLOROTH [Concomitant]
     Active Substance: HYDROCHLOROTHIAZIDE
  16. METOLAZONE. [Concomitant]
     Active Substance: METOLAZONE
  17. CYCLOBENZAPRINE. [Concomitant]
     Active Substance: CYCLOBENZAPRINE
  18. REMODULIN [Concomitant]
     Active Substance: TREPROSTINIL
  19. ADEMPAS [Concomitant]
     Active Substance: RIOCIGUAT
  20. ATORVASTATIN [Concomitant]
     Active Substance: ATORVASTATIN
     Dosage: 20 MG
     Dates: start: 20190827
  21. EPLERENONE. [Concomitant]
     Active Substance: EPLERENONE
     Dosage: 50 MG
     Dates: start: 20190906
  22. FERROUS SULFATE. [Concomitant]
     Active Substance: FERROUS SULFATE
  23. ALENDRONATE [Concomitant]
     Active Substance: ALENDRONATE SODIUM
     Dosage: 70 MG
     Dates: start: 20190827
  24. ESCITALOPRAM [Concomitant]
     Active Substance: ESCITALOPRAM OXALATE
  25. OXYCODONE [Concomitant]
     Active Substance: OXYCODONE
  26. PERCOCET [Concomitant]
     Active Substance: ACETAMINOPHEN\OXYCODONE HYDROCHLORIDE
     Dosage: 10/325
     Dates: start: 20190827
  27. DIGOX [Concomitant]
     Active Substance: DIGOXIN
  28. PANTOPRAZOLE [Concomitant]
     Active Substance: PANTOPRAZOLE
     Dosage: 40 MG
     Dates: start: 20190818

REACTIONS (13)
  - Fluid overload [Not Recovered/Not Resolved]
  - Localised oedema [Unknown]
  - Cardiac failure [Not Recovered/Not Resolved]
  - Device malfunction [Unknown]
  - Device leakage [Unknown]
  - Fall [Unknown]
  - Mental status changes [Not Recovered/Not Resolved]
  - Blood electrolytes decreased [Recovering/Resolving]
  - Blood potassium decreased [Unknown]
  - Unevaluable event [Unknown]
  - Complication associated with device [Unknown]
  - Wrist fracture [Unknown]
  - Pulmonary arterial hypertension [Unknown]

NARRATIVE: CASE EVENT DATE: 201909
